FAERS Safety Report 11145815 (Version 6)
Quarter: 2015Q3

REPORT INFORMATION
  Report Type: Spontaneous
  Country: US (occurrence: US)
  Receive Date: 20150528
  Receipt Date: 20150921
  Transmission Date: 20151125
  Serious: Yes (Other)
  Sender: FDA-Public Use
  Company Number: US-PFIZER INC-2015177938

PATIENT
  Age: 56 Year
  Sex: Female
  Weight: 70 kg

DRUGS (2)
  1. LYRICA [Suspect]
     Active Substance: PREGABALIN
     Indication: FIBROMYALGIA
     Dosage: 50 MG, DAILY
     Route: 048
  2. LYRICA [Suspect]
     Active Substance: PREGABALIN
     Dosage: 100 MG, DAILY
     Route: 048
     Dates: start: 2013

REACTIONS (6)
  - Pain [Recovered/Resolved]
  - Insomnia [Recovered/Resolved]
  - Drug effect incomplete [Unknown]
  - Arthralgia [Recovered/Resolved]
  - Renal impairment [Recovered/Resolved]
  - Neck pain [Recovered/Resolved]
